FAERS Safety Report 7221624-2 (Version None)
Quarter: 2011Q1

REPORT INFORMATION
  Report Type: 
  Country: None (occurrence: None)
  Receive Date: 20110112
  Receipt Date: 20110111
  Transmission Date: 20110831
  Serious: Yes (Hospitalization)
  Sender: FDA-Public Use
  Company Number: FR-ROCHE-749576

PATIENT
  Sex: Female

DRUGS (7)
  1. LASIX [Suspect]
     Route: 048
  2. RIVOTRIL [Suspect]
     Route: 048
     Dates: start: 20100706, end: 20100706
  3. KARDEGIC [Concomitant]
     Dosage: AS LONG TERM
  4. HEMIGOXINE NATIVELLE [Concomitant]
     Dosage: AS LONG TERM
  5. SERESTA [Suspect]
     Route: 048
     Dates: start: 20100705
  6. RISPERDAL [Suspect]
     Route: 048
     Dates: start: 20100705, end: 20100705
  7. APROVEL [Suspect]
     Route: 048
     Dates: end: 20100707

REACTIONS (3)
  - HYPONATRAEMIA [None]
  - FALL [None]
  - BLOOD CREATININE INCREASED [None]
